FAERS Safety Report 15339589 (Version 1)
Quarter: 2018Q3

REPORT INFORMATION
  Report Type: Report from Study
  Country: US (occurrence: US)
  Receive Date: 20180831
  Receipt Date: 20180831
  Transmission Date: 20181010
  Serious: Yes (Other)
  Sender: FDA-Public Use
  Company Number: US-MYLANLABS-2018M1063900

PATIENT
  Age: 68 Year
  Sex: Female

DRUGS (1)
  1. IBANDRONATE [Suspect]
     Active Substance: IBANDRONATE SODIUM
     Indication: PRODUCT USED FOR UNKNOWN INDICATION
     Route: 065

REACTIONS (2)
  - Atypical femur fracture [Recovered/Resolved]
  - Paradoxical drug reaction [Recovered/Resolved]

NARRATIVE: CASE EVENT DATE: 20101016
